FAERS Safety Report 7548630-2 (Version None)
Quarter: 2011Q2

REPORT INFORMATION
  Report Type: 
  Country: None (occurrence: None)
  Receive Date: 20110615
  Receipt Date: 20110531
  Transmission Date: 20111010
  Serious: Yes (Hospitalization, Other)
  Sender: FDA-Public Use
  Company Number: DE-JNJFOC-20060602659

PATIENT

DRUGS (6)
  1. INFLIXIMAB [Suspect]
     Indication: CROHN'S DISEASE
     Dosage: 7TH INFUSION
     Route: 042
     Dates: start: 20050215, end: 20051125
  2. INFLIXIMAB [Suspect]
     Indication: BEHCET'S SYNDROME
     Dosage: 10TH INFUSION
     Route: 042
     Dates: start: 20060407, end: 20060517
  3. ARCOXIA [Concomitant]
     Indication: BEHCET'S SYNDROME
     Dosage: 90
     Route: 065
  4. AMITRIPTYLINE HCL [Concomitant]
     Indication: ANTIDEPRESSANT THERAPY
     Route: 065
  5. INFLIXIMAB [Suspect]
     Dosage: 7TH INFUSION
     Route: 042
     Dates: start: 20050215, end: 20051125
  6. INFLIXIMAB [Suspect]
     Dosage: 10TH INFUSION
     Route: 042
     Dates: start: 20060407, end: 20060517

REACTIONS (1)
  - LUPUS-LIKE SYNDROME [None]
